FAERS Safety Report 8806370 (Version 1)
Quarter: 2012Q4

REPORT INFORMATION
  Report Type: 
  Country: US (occurrence: US)
  Receive Date: 20120925
  Receipt Date: 20120925
  Transmission Date: 20130627
  Serious: Yes (Death)
  Sender: FDA-Public Use
  Company Number: US-BRISTOL-MYERS SQUIBB COMPANY-16967663

PATIENT

DRUGS (1)
  1. YERVOY [Suspect]
     Dosage: 1DF:50mg/10ml,918689,Exp:7/2014
200mg/40ml,918688EXP:6/2014
NDC#00003232711,00003232822

REACTIONS (1)
  - Death [Fatal]
